FAERS Safety Report 15693284 (Version 1)
Quarter: 2018Q4

REPORT INFORMATION
  Report Type: Spontaneous
  Country: EE (occurrence: EE)
  Receive Date: 20181206
  Receipt Date: 20181206
  Transmission Date: 20190205
  Serious: Yes (Other)
  Sender: FDA-Public Use
  Company Number: EE-BRISTOL-MYERS SQUIBB COMPANY-BMS-2018-114852

PATIENT
  Age: 54 Year
  Sex: Female
  Weight: 73 kg

DRUGS (3)
  1. HYDREA [Suspect]
     Active Substance: HYDROXYUREA
     Indication: THROMBOCYTOPENIA
     Dosage: 500 MG, PER DAY
     Route: 048
     Dates: start: 20170221, end: 20170713
  2. METOPROLOL. [Concomitant]
     Active Substance: METOPROLOL
     Indication: PRODUCT USED FOR UNKNOWN INDICATION
     Dosage: 50 MG, PER DAY
     Route: 048
  3. ALLOPURINOL. [Concomitant]
     Active Substance: ALLOPURINOL
     Indication: PRODUCT USED FOR UNKNOWN INDICATION
     Dosage: 300 MG, PER DAY
     Route: 048
     Dates: start: 20170616

REACTIONS (1)
  - Rectal ulcer [Recovered/Resolved with Sequelae]

NARRATIVE: CASE EVENT DATE: 201805
